FAERS Safety Report 25387373 (Version 2)
Quarter: 2025Q3

REPORT INFORMATION
  Report Type: Spontaneous
  Country: US (occurrence: US)
  Receive Date: 20250602
  Receipt Date: 20250828
  Transmission Date: 20251020
  Serious: Yes (Other)
  Sender: JOHNSON AND JOHNSON
  Company Number: US-JNJFOC-20250535202

PATIENT
  Age: 13 Year
  Sex: Female

DRUGS (1)
  1. REMICADE [Suspect]
     Active Substance: INFLIXIMAB
     Indication: Behcet^s syndrome
     Route: 041

REACTIONS (4)
  - Sensation of foreign body [Unknown]
  - Swollen tongue [Unknown]
  - Protrusion tongue [Unknown]
  - Off label use [Unknown]

NARRATIVE: CASE EVENT DATE: 20250520
